FAERS Safety Report 13877525 (Version 1)
Quarter: 2017Q3

REPORT INFORMATION
  Report Type: Report from Study
  Country: US (occurrence: US)
  Receive Date: 20170817
  Receipt Date: 20170817
  Transmission Date: 20171127
  Serious: No
  Sender: FDA-Public Use
  Company Number: PHEH2017US025739

PATIENT
  Sex: Female

DRUGS (1)
  1. ILARIS [Suspect]
     Active Substance: CANAKINUMAB
     Indication: PRODUCT USED FOR UNKNOWN INDICATION
     Dosage: 1 VIAL EACH ARM
     Route: 065

REACTIONS (5)
  - Dyspnoea [Recovering/Resolving]
  - Nausea [Unknown]
  - Lung disorder [Unknown]
  - Hypersensitivity [Unknown]
  - Urticaria [Recovering/Resolving]
